FAERS Safety Report 8509267-1 (Version None)
Quarter: 2012Q3

REPORT INFORMATION
  Report Type: 
  Country: None (occurrence: None)
  Receive Date: 20120713
  Receipt Date: 20120308
  Transmission Date: 20120928
  Serious: No
  Sender: FDA-Public Use
  Company Number: CH-ROCHE-1047205

PATIENT
  Age: 31 Year
  Sex: Female

DRUGS (2)
  1. ISOTRETINOIN [Suspect]
     Route: 064
     Dates: start: 20110801, end: 20111211
  2. ISOTRETINOIN [Suspect]
     Indication: ACNE
     Route: 064
     Dates: start: 20110801, end: 20110801

REACTIONS (1)
  - MATERNAL EXPOSURE DURING PREGNANCY [None]
